FAERS Safety Report 4518343-X (Version None)
Quarter: 2004Q4

REPORT INFORMATION
  Report Type: 
  Country: None (occurrence: None)
  Receive Date: 20041203
  Receipt Date: 20041007
  Transmission Date: 20050328
  Serious: Yes (Hospitalization, Other)
  Sender: FDA-Public Use
  Company Number: ZA-ABBOTT-04P-143-0277006-00

PATIENT
  Age: 60 Year
  Sex: Male

DRUGS (2)
  1. CLARITHROMYCIN [Suspect]
     Indication: PYREXIA
     Route: 065
  2. CLARITHROMYCIN [Suspect]
     Indication: INFECTION

REACTIONS (8)
  - AGRANULOCYTOSIS [None]
  - BACTERIAL INFECTION [None]
  - CHILLS [None]
  - CONFUSIONAL STATE [None]
  - HYPERHIDROSIS [None]
  - INFLUENZA LIKE ILLNESS [None]
  - VOMITING [None]
  - WHITE BLOOD CELL COUNT DECREASED [None]
